FAERS Safety Report 13901665 (Version 2)
Quarter: 2017Q3

REPORT INFORMATION
  Report Type: Report from Study
  Country: None (occurrence: US)
  Receive Date: 20170824
  Receipt Date: 20170927
  Transmission Date: 20171127
  Serious: Yes (Hospitalization, Other)
  Sender: FDA-Public Use
  Company Number: US-ABBVIE-17K-163-1854063-00

PATIENT
  Age: 54 Year
  Sex: Male

DRUGS (5)
  1. HUMIRA [Suspect]
     Active Substance: ADALIMUMAB
     Route: 058
     Dates: start: 20170203, end: 20170203
  2. HUMIRA [Suspect]
     Active Substance: ADALIMUMAB
     Route: 058
     Dates: start: 2017, end: 2017
  3. HUMIRA [Suspect]
     Active Substance: ADALIMUMAB
     Indication: CROHN^S DISEASE
     Route: 058
     Dates: start: 20170120, end: 20170120
  4. HUMIRA [Suspect]
     Active Substance: ADALIMUMAB
     Route: 058
     Dates: start: 20170217, end: 2017
  5. HUMIRA [Suspect]
     Active Substance: ADALIMUMAB
     Route: 058
     Dates: start: 20170121, end: 20170121

REACTIONS (22)
  - Weight decreased [Unknown]
  - Malaise [Not Recovered/Not Resolved]
  - Dizziness [Not Recovered/Not Resolved]
  - Abdominal pain [Recovered/Resolved]
  - Rectal fissure [Unknown]
  - Rectal tenesmus [Unknown]
  - Abdominal pain upper [Recovering/Resolving]
  - Proctalgia [Unknown]
  - Gastrointestinal inflammation [Unknown]
  - Crohn^s disease [Not Recovered/Not Resolved]
  - Depressed mood [Unknown]
  - Injection site pain [Not Recovered/Not Resolved]
  - Nausea [Unknown]
  - Dyschezia [Unknown]
  - Frequent bowel movements [Unknown]
  - Decreased appetite [Unknown]
  - Rectal discharge [Recovered/Resolved]
  - Abdominal pain [Recovering/Resolving]
  - Drug ineffective [Not Recovered/Not Resolved]
  - Pyrexia [Unknown]
  - Haemorrhoidal haemorrhage [Unknown]
  - Diarrhoea [Not Recovered/Not Resolved]

NARRATIVE: CASE EVENT DATE: 2017
